FAERS Safety Report 25884556 (Version 1)
Quarter: 2025Q4

REPORT INFORMATION
  Report Type: Spontaneous
  Country: US (occurrence: US)
  Receive Date: 20251006
  Receipt Date: 20251006
  Transmission Date: 20260118
  Serious: No
  Sender: RANBAXY
  Company Number: US-SUN PHARMACEUTICAL INDUSTRIES LTD-2024R1-466738

PATIENT
  Sex: Female

DRUGS (2)
  1. CEQUA [Suspect]
     Active Substance: CYCLOSPORINE
     Indication: Eye infection
     Dosage: UNK UNK, QD ONCE A DAY FOR THE FIRST WEEK
     Route: 047
     Dates: start: 202408, end: 20240829
  2. CEQUA [Suspect]
     Active Substance: CYCLOSPORINE
     Dosage: UNK UNK, BID DAY FOR THE NEXT WEEK,
     Route: 047
     Dates: start: 202408, end: 20240829

REACTIONS (5)
  - Eye infection [Recovered/Resolved]
  - Eye irritation [Recovered/Resolved]
  - Therapy cessation [Unknown]
  - Therapeutic product effect incomplete [Unknown]
  - Ocular hyperaemia [Unknown]
